FAERS Safety Report 4600934-9 (Version None)
Quarter: 2005Q1

REPORT INFORMATION
  Report Type: 
  Country: None (occurrence: None)
  Receive Date: 20050127
  Receipt Date: 20041025
  Transmission Date: 20050727
  Serious: No
  Sender: FDA-Public Use
  Company Number: USA041082152

PATIENT
  Age: 11 Year
  Sex: Male

DRUGS (1)
  1. STRATTERA [Suspect]
     Dosage: 120 MG/1 DAY
     Dates: start: 20040601

REACTIONS (3)
  - FATIGUE [None]
  - INSOMNIA [None]
  - PRESCRIBED OVERDOSE [None]
